FAERS Safety Report 15283106 (Version 1)
Quarter: 2018Q3

REPORT INFORMATION
  Report Type: Report from Study
  Country: IN (occurrence: IN)
  Receive Date: 20180816
  Receipt Date: 20180816
  Transmission Date: 20181010
  Serious: Yes (Other)
  Sender: FDA-Public Use
  Company Number: IN-ROCHE-2170329

PATIENT
  Age: 84 Year
  Sex: Male

DRUGS (1)
  1. ACCENTRIX [Suspect]
     Active Substance: RANIBIZUMAB
     Indication: AGE-RELATED MACULAR DEGENERATION
     Dosage: 0.05 MG/ML, UNK
     Route: 031
     Dates: start: 20180726

REACTIONS (4)
  - Visual impairment [Unknown]
  - Endophthalmitis [Recovering/Resolving]
  - Conjunctival hyperaemia [Unknown]
  - Vitritis [Unknown]

NARRATIVE: CASE EVENT DATE: 20180729
